FAERS Safety Report 12772041 (Version 2)
Quarter: 2016Q3

REPORT INFORMATION
  Report Type: Spontaneous
  Country: US (occurrence: US)
  Receive Date: 20160922
  Receipt Date: 20160928
  Transmission Date: 20161109
  Serious: Yes (Other)
  Sender: FDA-Public Use
  Company Number: US-PROCTER_AND_GAMBLE-GS16114811

PATIENT
  Age: 31 Year
  Sex: Male

DRUGS (8)
  1. ESCITALOPRAM [Concomitant]
     Active Substance: ESCITALOPRAM OXALATE
     Indication: AFFECTIVE DISORDER
  2. VICKS NYQUIL COLD AND FLU NIGHTTIME RELIEF [Suspect]
     Active Substance: ACETAMINOPHEN\DEXTROMETHORPHAN HYDROBROMIDE\DOXYLAMINE SUCCINATE
     Indication: DRUG ABUSE
     Dosage: 4 GEL CAPS PER DAY
     Route: 048
  3. PRAZOSIN [Concomitant]
     Active Substance: PRAZOSIN
     Indication: POST-TRAUMATIC STRESS DISORDER
     Dosage: 4 MG, BEDTIME
     Route: 048
  4. VICKS NYQUIL COLD AND FLU NIGHTTIME RELIEF [Suspect]
     Active Substance: ACETAMINOPHEN\DEXTROMETHORPHAN HYDROBROMIDE\DOXYLAMINE SUCCINATE
     Dosage: 20 GEL CAPS PER DAY
     Route: 048
  5. ESCITALOPRAM [Concomitant]
     Active Substance: ESCITALOPRAM OXALATE
     Indication: POST-TRAUMATIC STRESS DISORDER
     Dosage: 20 MG, DAILY
     Route: 048
  6. VICKS NYQUIL COLD AND FLU NIGHTTIME RELIEF [Suspect]
     Active Substance: ACETAMINOPHEN\DEXTROMETHORPHAN HYDROBROMIDE\DOXYLAMINE SUCCINATE
     Indication: SLEEP DISORDER
     Dosage: 1-2 GEL CAPS
     Route: 048
  7. VICKS NYQUIL COLD AND FLU NIGHTTIME RELIEF [Suspect]
     Active Substance: ACETAMINOPHEN\DEXTROMETHORPHAN HYDROBROMIDE\DOXYLAMINE SUCCINATE
     Dosage: 40 GEL CAPS WITHIN 24 HOURS
     Route: 048
  8. PRAZOSIN [Concomitant]
     Active Substance: PRAZOSIN
     Indication: AFFECTIVE DISORDER

REACTIONS (11)
  - Accidental overdose [Unknown]
  - Aspartate aminotransferase increased [Unknown]
  - Disturbance in social behaviour [Unknown]
  - Drug abuse [Recovered/Resolved]
  - Tremor [Unknown]
  - Drug dependence [Recovering/Resolving]
  - Withdrawal syndrome [Unknown]
  - Abdominal discomfort [Unknown]
  - Anxiety [Unknown]
  - Analgesic drug level increased [Unknown]
  - Blood alkaline phosphatase increased [Unknown]
